FAERS Safety Report 14173527 (Version 4)
Quarter: 2018Q2

REPORT INFORMATION
  Report Type: Spontaneous
  Country: US (occurrence: US)
  Receive Date: 20171109
  Receipt Date: 20180530
  Transmission Date: 20180711
  Serious: Yes (Other)
  Sender: FDA-Public Use
  Company Number: US-PFIZER INC-2017479917

PATIENT
  Age: 61 Year
  Sex: Female

DRUGS (3)
  1. IBRANCE [Suspect]
     Active Substance: PALBOCICLIB
     Dosage: 100 MG, CYCLIC
     Dates: start: 20160105
  2. LETROZOLE. [Suspect]
     Active Substance: LETROZOLE
     Dosage: UNK
  3. IBRANCE [Suspect]
     Active Substance: PALBOCICLIB
     Indication: BREAST CANCER METASTATIC
     Dosage: 125 MG, CYCLIC
     Dates: end: 20160105

REACTIONS (13)
  - Cough [Unknown]
  - Condition aggravated [Unknown]
  - Neutropenia [Unknown]
  - Cystitis [Unknown]
  - Alopecia [Unknown]
  - Nasopharyngitis [Unknown]
  - Headache [Unknown]
  - Feeling abnormal [Unknown]
  - Influenza like illness [Unknown]
  - Stomatitis [Recovering/Resolving]
  - Arthralgia [Unknown]
  - Nausea [Not Recovered/Not Resolved]
  - Malaise [Unknown]
